FAERS Safety Report 14679181 (Version 1)
Quarter: 2018Q1

REPORT INFORMATION
  Report Type: Spontaneous
  Country: US (occurrence: US)
  Receive Date: 20180326
  Receipt Date: 20180326
  Transmission Date: 20180509
  Serious: No
  Sender: FDA-Public Use
  Company Number: US-PFIZER INC-2018118867

PATIENT
  Age: 55 Year
  Sex: Female

DRUGS (1)
  1. XELJANZ [Suspect]
     Active Substance: TOFACITINIB CITRATE
     Indication: RHEUMATOID ARTHRITIS
     Dosage: 5 MG, 2X/DAY
     Route: 048
     Dates: start: 201607

REACTIONS (8)
  - Migraine with aura [Unknown]
  - Sinus headache [Unknown]
  - Fatigue [Unknown]
  - Facial pain [Unknown]
  - Cough [Unknown]
  - Memory impairment [Unknown]
  - Oropharyngeal pain [Unknown]
  - Eye pain [Unknown]

NARRATIVE: CASE EVENT DATE: 201802
